FAERS Safety Report 8859155 (Version 4)
Quarter: 2013Q1

REPORT INFORMATION
  Report Type: Report from Study
  Country: JP (occurrence: JP)
  Receive Date: 20121024
  Receipt Date: 20130315
  Transmission Date: 20140127
  Serious: Yes (Hospitalization, Other)
  Sender: FDA-Public Use
  Company Number: JP-009507513-1210JPN005496

PATIENT
  Age: 50 Year
  Sex: Male
  Weight: 63 kg

DRUGS (7)
  1. PEGINTRON [Suspect]
     Indication: CHRONIC HEPATITIS C
     Dosage: 1.5 MICROGRAM PER KILOGRAM,QW,DAILY DOSE UNKNOWN
     Route: 058
     Dates: end: 20120819
  2. PEGINTRON [Suspect]
     Dosage: 1.3 MICROGRAM PER KILOGRAM, QW,,DAILY DOSE UNKNOWN
     Route: 058
     Dates: start: 20120825, end: 20120825
  3. REBETOL [Suspect]
     Indication: CHRONIC HEPATITIS C
     Dosage: 800 MG, QD
     Route: 048
     Dates: start: 20120807, end: 20120825
  4. REBETOL [Suspect]
     Dosage: 400 MG, QD
     Route: 048
     Dates: start: 20120826, end: 20120827
  5. TELAVIC [Suspect]
     Indication: CHRONIC HEPATITIS C
     Dosage: 2250 MG, QD
     Route: 048
     Dates: start: 20120807, end: 20120825
  6. BARACLUDE [Concomitant]
     Indication: HEPATITIS B
     Dosage: 0.5 MG, QD, FORMULATION: POR
     Route: 048
  7. BENET [Concomitant]
     Indication: FIBROUS DYSPLASIA OF BONE
     Dosage: 17.5 MG, QW.  FORMULATION: POR
     Route: 048
     Dates: end: 20120819

REACTIONS (3)
  - Hypercalcaemia [Recovering/Resolving]
  - Blood alkaline phosphatase increased [Recovered/Resolved]
  - Renal failure acute [Recovering/Resolving]
